FAERS Safety Report 5237296-2 (Version None)
Quarter: 2007Q1

REPORT INFORMATION
  Report Type: 
  Country: None (occurrence: None)
  Receive Date: 20070213
  Receipt Date: 20070206
  Transmission Date: 20070707
  Serious: Yes (Hospitalization)
  Sender: FDA-Public Use
  Company Number: US-JNJFOC-20060804430

PATIENT
  Sex: Female
  Weight: 82.3 kg

DRUGS (3)
  1. ORTHO EVRA [Suspect]
     Indication: CONTRACEPTION
  2. ALBUTEROL [Concomitant]
     Indication: ASTHMA
     Dosage: USED INFREQUENTLY
  3. AMITRYPTYLINE [Concomitant]
     Indication: SCIATICA
     Dosage: DOSAGE UNKNOWN

REACTIONS (5)
  - BLOOD ALKALINE PHOSPHATASE INCREASED [None]
  - COSTOCHONDRITIS [None]
  - DEEP VEIN THROMBOSIS [None]
  - HAEMATURIA [None]
  - PULMONARY EMBOLISM [None]
